FAERS Safety Report 6762200-5 (Version None)
Quarter: 2010Q2

REPORT INFORMATION
  Report Type: 
  Country: None (occurrence: None)
  Receive Date: 20100609
  Receipt Date: 20100426
  Transmission Date: 20101027
  Serious: No
  Sender: FDA-Public Use
  Company Number: US-KINGPHARMUSA00001-K201000496

PATIENT
  Sex: Male
  Weight: 78.005 kg

DRUGS (4)
  1. EMBEDA [Suspect]
     Indication: BONE PAIN
     Dosage: 300 MG, BID
     Route: 048
     Dates: start: 20100101, end: 20100422
  2. HUMATROPE [Concomitant]
     Indication: BLOOD GROWTH HORMONE ABNORMAL
     Dosage: 2 UNK, UNK
     Route: 058
  3. ROXICODONE [Concomitant]
     Indication: BREAKTHROUGH PAIN
     Dosage: 30 MG 2-3 TABLETS, Q 4-6 H, NO MORE THAN 8 PRN
     Route: 048
  4. SYNTHROID [Concomitant]
     Indication: THYROID HORMONE REPLACEMENT THERAPY
     Dosage: 175 MG, QD
     Route: 048

REACTIONS (6)
  - DRUG INEFFECTIVE [None]
  - GINGIVAL DISORDER [None]
  - RESORPTION BONE INCREASED [None]
  - SENSITIVITY OF TEETH [None]
  - TOOTH DISORDER [None]
  - TOOTHACHE [None]
